FAERS Safety Report 19497853 (Version 4)
Quarter: 2022Q1

REPORT INFORMATION
  Report Type: Report from Study
  Country: CN (occurrence: CN)
  Receive Date: 20210706
  Receipt Date: 20220316
  Transmission Date: 20220423
  Serious: Yes (Other)
  Sender: FDA-Public Use
  Company Number: CN-TAKEDA-2021TUS041472

PATIENT
  Age: 73 Year
  Sex: Female
  Weight: 62 kg

DRUGS (18)
  1. IXAZOMIB [Suspect]
     Active Substance: IXAZOMIB
     Indication: Plasma cell myeloma
     Dosage: 4 MILLIGRAM, QD
     Route: 048
     Dates: start: 20210525
  2. SODIUM BICARBONATE [Concomitant]
     Active Substance: SODIUM BICARBONATE
     Dosage: 2 GRAM, TID
     Route: 042
     Dates: start: 20210522, end: 20210522
  3. SODIUM BICARBONATE [Concomitant]
     Active Substance: SODIUM BICARBONATE
     Dosage: 2 GRAM, QD
     Route: 042
     Dates: start: 20210523, end: 20210528
  4. DEXTROSE [Concomitant]
     Active Substance: DEXTROSE
     Dosage: 500 MILLILITER, QD
     Route: 042
     Dates: start: 20210522, end: 20210522
  5. DEXAMETHASONE SODIUM PHOSPHATE [Concomitant]
     Active Substance: DEXAMETHASONE SODIUM PHOSPHATE
     Dosage: 10 MILLIGRAM, QD
     Route: 042
     Dates: start: 20210522, end: 20210524
  6. HYDROTALCITE [Concomitant]
     Active Substance: HYDROTALCITE
     Indication: Prophylaxis against gastrointestinal ulcer
     Dosage: 0.5 GRAM, TID
     Route: 048
     Dates: start: 20210523, end: 20210528
  7. HYDROTALCITE [Concomitant]
     Active Substance: HYDROTALCITE
     Dosage: 0.5 GRAM, TID
     Route: 048
     Dates: start: 20210710, end: 20210805
  8. ASPIRIN [Concomitant]
     Active Substance: ASPIRIN
     Indication: Prophylaxis
     Dosage: 100 MILLIGRAM, QD
     Route: 048
     Dates: start: 20210525, end: 20210528
  9. ASPIRIN [Concomitant]
     Active Substance: ASPIRIN
     Dosage: 100 MILLIGRAM, QD
     Route: 048
     Dates: start: 20210710, end: 20210805
  10. LENALIDOMIDE [Concomitant]
     Active Substance: LENALIDOMIDE
     Indication: Plasma cell myeloma
     Dosage: 10 MILLIGRAM, QD
     Route: 048
     Dates: start: 20210525
  11. Haikun shenxi [Concomitant]
     Dosage: 0.88 GRAM, TID
     Route: 048
     Dates: start: 20210523, end: 20210528
  12. TORSEMIDE [Concomitant]
     Active Substance: TORSEMIDE
     Dosage: 20 MILLIGRAM, QD
     Route: 042
     Dates: start: 20210523, end: 20210525
  13. TORSEMIDE [Concomitant]
     Active Substance: TORSEMIDE
     Dosage: 10 MILLIGRAM, BID
     Route: 042
     Dates: start: 20210524, end: 20210524
  14. FUROSEMIDE [Concomitant]
     Active Substance: FUROSEMIDE
     Dosage: 20 MILLIGRAM, QD
     Route: 048
     Dates: start: 20210523, end: 20210528
  15. SPIRONOLACTONE [Concomitant]
     Active Substance: SPIRONOLACTONE
     Dosage: 20 MILLIGRAM, QD
     Route: 048
     Dates: start: 20210523, end: 20210528
  16. NIAO DU QING [Concomitant]
     Indication: Renal failure
     Dosage: 5 GRAM, QD
     Route: 048
     Dates: start: 20210523, end: 20210528
  17. NIAO DU QING [Concomitant]
     Dosage: 5 GRAM, QD
     Route: 048
     Dates: start: 20210710, end: 20210805
  18. METOPROLOL TARTRATE [Concomitant]
     Active Substance: METOPROLOL TARTRATE
     Indication: Arrhythmia
     Dosage: 23.75 MILLIGRAM, QD
     Route: 048
     Dates: start: 20210620

REACTIONS (5)
  - Hypokalaemia [Recovered/Resolved]
  - Aspartate aminotransferase increased [Recovered/Resolved]
  - Alanine aminotransferase increased [Recovered/Resolved]
  - Enteritis [Recovered/Resolved]
  - Anaemia [Not Recovered/Not Resolved]

NARRATIVE: CASE EVENT DATE: 20210526
